FAERS Safety Report 6225410-1 (Version None)
Quarter: 2009Q2

REPORT INFORMATION
  Report Type: 
  Country: None (occurrence: None)
  Receive Date: 20090612
  Receipt Date: 20090416
  Transmission Date: 20091009
  Serious: No
  Sender: FDA-Public Use
  Company Number: US-ABBOTT-09P-163-0568817-00

PATIENT
  Sex: Female
  Weight: 77.18 kg

DRUGS (10)
  1. HUMIRA [Suspect]
     Indication: CROHN'S DISEASE
     Route: 058
     Dates: start: 20090410, end: 20090410
  2. HUMIRA [Suspect]
  3. ENTOCORT EC [Concomitant]
     Indication: CROHN'S DISEASE
  4. BENTYL [Concomitant]
     Indication: CROHN'S DISEASE
  5. ASCORBIC ACID [Concomitant]
     Indication: ROUTINE HEALTH MAINTENANCE
  6. CALCIUM W/VITAMIN D [Concomitant]
     Indication: VITAMIN SUPPLEMENTATION
  7. VITAMIN D [Concomitant]
     Indication: HYPOVITAMINOSIS
  8. SYNTHROID [Concomitant]
     Indication: HYPOTHYROIDISM
  9. METFORMIN HYDROCHLORIDE [Concomitant]
     Indication: DIABETES MELLITUS
  10. GLUCATROL [Concomitant]
     Indication: DIABETES MELLITUS

REACTIONS (2)
  - ABDOMINAL PAIN UPPER [None]
  - ANXIETY [None]
